FAERS Safety Report 8806725 (Version 1)
Quarter: 2012Q4

REPORT INFORMATION
  Report Type: 
  Country: IT (occurrence: IT)
  Receive Date: 20120925
  Receipt Date: 20120925
  Transmission Date: 20130627
  Serious: Yes (Other)
  Sender: FDA-Public Use
  Company Number: PHHY2012IT014785

PATIENT
  Age: 43 Year
  Sex: Male

DRUGS (4)
  1. TOPIRAMATE [Suspect]
     Indication: TEMPORAL LOBE EPILEPSY
     Dosage: 150 mg, BID
     Dates: start: 2005
  2. LEVIRACETAM [Concomitant]
     Dosage: 1000 mg, BID
  3. LEVIRACETAM [Concomitant]
     Dosage: 500 mg, BID
  4. VITAMIN B [Concomitant]
     Dosage: UNK UKN, UNK

REACTIONS (6)
  - Hereditary optic atrophy [Not Recovered/Not Resolved]
  - Toxic optic neuropathy [Not Recovered/Not Resolved]
  - Visual acuity reduced [Not Recovered/Not Resolved]
  - Scotoma [Not Recovered/Not Resolved]
  - Vision blurred [Not Recovered/Not Resolved]
  - Blindness [Recovering/Resolving]
